FAERS Safety Report 24996527 (Version 1)
Quarter: 2025Q1

REPORT INFORMATION
  Report Type: Spontaneous
  Country: TW (occurrence: TW)
  Receive Date: 20250221
  Receipt Date: 20250221
  Transmission Date: 20250409
  Serious: Yes (Other)
  Sender: AMGEN
  Company Number: TW-PFIZER INC-PV202500018909

PATIENT
  Sex: Male

DRUGS (1)
  1. ENBREL [Suspect]
     Active Substance: ETANERCEPT
     Indication: Ankylosing spondylitis
     Dosage: 25 MG, BIW
     Route: 058
     Dates: start: 201907, end: 20250215

REACTIONS (1)
  - Iritis [Unknown]

NARRATIVE: CASE EVENT DATE: 20250215
